FAERS Safety Report 24455435 (Version 2)
Quarter: 2024Q4

REPORT INFORMATION
  Report Type: Report from Study
  Country: CN (occurrence: CN)
  Receive Date: 20241017
  Receipt Date: 20241018
  Transmission Date: 20250115
  Serious: No
  Sender: ROCHE
  Company Number: CN-ROCHE-3490774

PATIENT
  Age: 9 Year
  Sex: Female

DRUGS (3)
  1. RITUXIMAB [Suspect]
     Active Substance: RITUXIMAB
     Indication: Polyglandular autoimmune syndrome type III
     Dosage: FREQUENCY TEXT:ONCE
     Route: 042
  2. INSULIN NOS [Concomitant]
     Active Substance: INSULIN NOS
  3. METHIMAZOLE [Concomitant]
     Active Substance: METHIMAZOLE

REACTIONS (2)
  - Off label use [Unknown]
  - No adverse event [Unknown]
